FAERS Safety Report 5872760-4 (Version None)
Quarter: 2008Q3

REPORT INFORMATION
  Report Type: 
  Country: None (occurrence: None)
  Receive Date: 20080905
  Receipt Date: 20080805
  Transmission Date: 20090109
  Serious: No
  Sender: FDA-Public Use
  Company Number: US-BAYER-200830055NA

PATIENT
  Sex: Female

DRUGS (2)
  1. NEXAVAR [Suspect]
     Indication: DRUG USE FOR UNKNOWN INDICATION
     Route: 048
  2. SYNTHROID [Concomitant]

REACTIONS (1)
  - THYROID FUNCTION TEST ABNORMAL [None]
